FAERS Safety Report 16978197 (Version 4)
Quarter: 2020Q2

REPORT INFORMATION
  Report Type: Spontaneous
  Country: IT (occurrence: IT)
  Receive Date: 20191031
  Receipt Date: 20200507
  Transmission Date: 20200713
  Serious: Yes (Hospitalization)
  Sender: FDA-Public Use
  Company Number: IT-ALLERGAN-1943393US

PATIENT
  Sex: Female

DRUGS (1)
  1. ESCITALOPRAM OXALATE - BP [Suspect]
     Active Substance: ESCITALOPRAM OXALATE
     Indication: PRODUCT ADMINISTRATION ERROR
     Dosage: OVERDOSE: 25 GTT
     Route: 048
     Dates: start: 20190830, end: 20190830

REACTIONS (6)
  - Malaise [Recovering/Resolving]
  - Medication error [Unknown]
  - Overdose [Unknown]
  - Paraesthesia [Recovering/Resolving]
  - Muscle contractions involuntary [Recovering/Resolving]
  - Sopor [Recovering/Resolving]

NARRATIVE: CASE EVENT DATE: 20190830
